FAERS Safety Report 9187207 (Version 1)
Quarter: 2013Q1

REPORT INFORMATION
  Report Type: Spontaneous
  Country: BR (occurrence: BR)
  Receive Date: 20130325
  Receipt Date: 20130325
  Transmission Date: 20140127
  Serious: Yes (Other)
  Sender: FDA-Public Use
  Company Number: PHHY2013BR028163

PATIENT
  Sex: Male

DRUGS (4)
  1. GALVUS MET [Suspect]
     Dosage: 1000/50 MG, BID
  2. RASILEZ HCT [Suspect]
     Indication: HYPERTENSION
     Dosage: UNK (300/12.5 MG), IN THE MORNING
  3. ICTUS [Suspect]
     Dosage: 25 MG, BID
  4. LIPITOR [Suspect]
     Dosage: 25 MG, BID

REACTIONS (2)
  - Hypertension [Unknown]
  - Type 2 diabetes mellitus [Unknown]
